FAERS Safety Report 16085900 (Version 2)
Quarter: 2019Q1

REPORT INFORMATION
  Report Type: Spontaneous
  Country: ID (occurrence: ID)
  Receive Date: 20190318
  Receipt Date: 20190329
  Transmission Date: 20190418
  Serious: Yes (Other)
  Sender: FDA-Public Use
  Company Number: ID-ASTRAZENECA-2018SE31149

PATIENT
  Age: 77 Year
  Sex: Male

DRUGS (1)
  1. TAGRISSO [Suspect]
     Active Substance: OSIMERTINIB
     Indication: NON-SMALL CELL LUNG CANCER
     Route: 048
     Dates: start: 20180212, end: 20190305

REACTIONS (4)
  - Fatigue [Unknown]
  - Back pain [Unknown]
  - Acquired gene mutation [Unknown]
  - Rash pruritic [Recovered/Resolved]
